FAERS Safety Report 23431653 (Version 3)
Quarter: 2024Q3

REPORT INFORMATION
  Report Type: Spontaneous
  Country: US (occurrence: US)
  Receive Date: 20240123
  Receipt Date: 20240926
  Transmission Date: 20241017
  Serious: Yes (Death, Disabling, Other)
  Sender: NOVARTIS
  Company Number: US-002147023-NVSC2024US012608

PATIENT
  Age: 65 Year
  Sex: Male
  Weight: 68 kg

DRUGS (2)
  1. PLUVICTO [Suspect]
     Active Substance: LUTETIUM LU-177 VIPIVOTIDE TETRAXETAN
     Indication: Prostate cancer metastatic
     Dosage: 200 MCI
     Route: 042
     Dates: start: 20231025
  2. PLUVICTO [Suspect]
     Active Substance: LUTETIUM LU-177 VIPIVOTIDE TETRAXETAN
     Dosage: 200 MCI (6 WEEKS, 2 DOSES TOTAL)
     Route: 042
     Dates: start: 20231206

REACTIONS (4)
  - Pulmonary embolism [Fatal]
  - Metastases to bone [Unknown]
  - Hip fracture [Unknown]
  - Thrombocytopenia [Not Recovered/Not Resolved]

NARRATIVE: CASE EVENT DATE: 20231220
